FAERS Safety Report 4436626-9 (Version None)
Quarter: 2004Q3

REPORT INFORMATION
  Report Type: 
  Country: None (occurrence: None)
  Receive Date: 20040830
  Receipt Date: 20040721
  Transmission Date: 20050211
  Serious: Yes (Hospitalization)
  Sender: FDA-Public Use
  Company Number: US-BRISTOL-MYERS SQUIBB COMPANY-12647350

PATIENT
  Age: 55 Year
  Sex: Male
  Weight: 94 kg

DRUGS (8)
  1. ABILIFY [Suspect]
     Indication: SCHIZOPHRENIA, PARANOID TYPE
     Dosage: 5 MG 11-SEP-03; INCREASED GRADUALLY TO 20 MG
     Route: 048
     Dates: start: 20030911
  2. ABILIFY [Suspect]
     Indication: MILD MENTAL RETARDATION
     Dosage: 5 MG 11-SEP-03; INCREASED GRADUALLY TO 20 MG
     Route: 048
     Dates: start: 20030911
  3. HALDOL [Concomitant]
  4. NYSTATIN [Concomitant]
  5. VITAMIN C [Concomitant]
  6. COLACE [Concomitant]
  7. SINGULAIR [Concomitant]
  8. ADVAIR DISKUS 100/50 [Concomitant]

REACTIONS (1)
  - URINARY RETENTION [None]
